FAERS Safety Report 6509152-0 (Version None)
Quarter: 2009Q4

REPORT INFORMATION
  Report Type: 
  Country: None (occurrence: None)
  Receive Date: 20091221
  Receipt Date: 20091216
  Transmission Date: 20100525
  Serious: Yes (Other)
  Sender: FDA-Public Use
  Company Number: FR-BAXTER-2009BH019455

PATIENT
  Age: 17 Year
  Sex: Male

DRUGS (5)
  1. SUPRANE [Suspect]
     Indication: GENERAL ANAESTHESIA
     Route: 055
     Dates: start: 20091014, end: 20091014
  2. AMOXICILLIN AND CLAVULANATE POTASSIUM [Suspect]
     Indication: ANTIBIOTIC PROPHYLAXIS
     Route: 042
     Dates: start: 20091014, end: 20091014
  3. PROPOFOL [Suspect]
     Indication: GENERAL ANAESTHESIA
     Route: 042
     Dates: start: 20091014, end: 20091014
  4. ULTIVA [Suspect]
     Indication: GENERAL ANAESTHESIA
     Route: 042
     Dates: start: 20091014, end: 20091014
  5. PERFALGAN [Suspect]
     Indication: PROCEDURAL PAIN
     Route: 042
     Dates: start: 20091014, end: 20091014

REACTIONS (2)
  - BRONCHOSPASM [None]
  - RASH [None]
